FAERS Safety Report 6728381-4 (Version None)
Quarter: 2010Q2

REPORT INFORMATION
  Report Type: 
  Country: None (occurrence: None)
  Receive Date: 20100517
  Receipt Date: 20100507
  Transmission Date: 20101027
  Serious: Yes (Hospitalization)
  Sender: FDA-Public Use
  Company Number: DE-JNJFOC-20100502237

PATIENT
  Sex: Male

DRUGS (20)
  1. IBUPROFEN [Suspect]
     Indication: PAIN
     Route: 048
  2. IBUPROFEN [Suspect]
     Route: 048
  3. SULTAMICILLIN TOSILATE [Suspect]
     Indication: SKIN ULCER
     Route: 048
  4. SULTAMICILLIN TOSILATE [Suspect]
     Route: 048
  5. METFORMIN HYDROCHLORIDE [Suspect]
     Indication: DIABETES MELLITUS
     Route: 048
  6. BUPIVACAINE HCL [Concomitant]
     Indication: ANALGESIC THERAPY
     Dosage: 25%
     Route: 065
  7. SUFENTANIL [Concomitant]
     Indication: ANALGESIC THERAPY
     Route: 065
  8. DIPYRONE TAB [Concomitant]
     Indication: PAIN
     Route: 042
  9. HEPARIN [Concomitant]
     Indication: THROMBOSIS PROPHYLAXIS
     Dosage: 5000.0 IU
     Route: 042
  10. PROPOFOL [Concomitant]
     Indication: GENERAL ANAESTHESIA
     Route: 042
  11. MIDAZOLAM HCL [Concomitant]
     Indication: SEDATION
     Route: 048
  12. SCANDICAIN [Concomitant]
     Indication: LOCAL ANAESTHESIA
     Route: 058
  13. NAROPIN [Concomitant]
     Indication: ANALGESIC THERAPY
     Route: 065
  14. CLONIDINE [Concomitant]
     Indication: PAIN
     Dosage: 75 MCG TWICE A DAY
     Route: 042
  15. DIPIDOLOR [Concomitant]
     Indication: PAIN
     Route: 042
  16. TAXOFIT [Concomitant]
     Indication: DRUG USE FOR UNKNOWN INDICATION
     Route: 065
  17. TRAMAGIT [Concomitant]
     Indication: PAIN
     Route: 048
  18. APIDRA [Concomitant]
     Indication: DIABETES MELLITUS
     Dosage: ^ACCORDING TO BLOOD GLUCOSE^
     Route: 058
  19. MAGNESIUM [Concomitant]
     Indication: MUSCLE SPASMS
     Route: 048
  20. CIPROFLOXACIN [Concomitant]
     Indication: SKIN ULCER
     Dosage: TWICE A DAY
     Route: 065

REACTIONS (1)
  - STEVENS-JOHNSON SYNDROME [None]
